FAERS Safety Report 13029014 (Version 1)
Quarter: 2016Q4

REPORT INFORMATION
  Report Type: Spontaneous
  Country: US (occurrence: US)
  Receive Date: 20161214
  Receipt Date: 20161214
  Transmission Date: 20170207
  Serious: No
  Sender: FDA-Public Use
  Company Number: US-BAUSCH-BL-2016-008824

PATIENT
  Age: 70 Year
  Sex: Female
  Weight: 67.65 kg

DRUGS (2)
  1. CARAC [Suspect]
     Active Substance: FLUOROURACIL
     Indication: PRECANCEROUS SKIN LESION
     Route: 061
     Dates: start: 20150506, end: 201505
  2. CARAC [Suspect]
     Active Substance: FLUOROURACIL
     Route: 061
     Dates: start: 20160409

REACTIONS (2)
  - Application site papules [Not Recovered/Not Resolved]
  - Drug effect decreased [Unknown]

NARRATIVE: CASE EVENT DATE: 201505
